FAERS Safety Report 7564518-5 (Version None)
Quarter: 2011Q2

REPORT INFORMATION
  Report Type: 
  Country: None (occurrence: None)
  Receive Date: 20110622
  Receipt Date: 20100802
  Transmission Date: 20111010
  Serious: Yes (Other)
  Sender: FDA-Public Use
  Company Number: US-MYLANLABS-2010S1006526

PATIENT
  Age: 30 Year
  Sex: Male
  Weight: 82.46 kg

DRUGS (9)
  1. DOXYCYCLINE [Concomitant]
  2. CLOZAPINE [Suspect]
     Indication: SCHIZOPHRENIA
  3. CLOZAPINE [Suspect]
     Route: 048
     Dates: end: 20100511
  4. LORAZEPAM [Concomitant]
  5. CLOZAPINE [Suspect]
     Dates: end: 20100511
  6. ILOPERIDONE [Concomitant]
  7. LISINOPRIL [Concomitant]
  8. NEXIUM [Concomitant]
  9. ZOLPIDEM [Concomitant]

REACTIONS (2)
  - LEUKOPENIA [None]
  - GRANULOCYTOPENIA [None]
